FAERS Safety Report 11696913 (Version 1)
Quarter: 2015Q4

REPORT INFORMATION
  Report Type: Spontaneous
  Country: US (occurrence: US)
  Receive Date: 20151104
  Receipt Date: 20151104
  Transmission Date: 20160304
  Serious: Yes (Other)
  Sender: FDA-Public Use
  Company Number: US-JNJFOC-20151022514

PATIENT
  Sex: Male

DRUGS (1)
  1. PANCREAZE [Suspect]
     Active Substance: PANCRELIPASE
     Indication: CYSTIC FIBROSIS
     Dosage: 16800 LIPASE UNITS USP, 4 TABLETS WITH MEALS 2-3 WITH SNACK
     Route: 048

REACTIONS (2)
  - Drug dose omission [Unknown]
  - Diabetes mellitus [Unknown]
